FAERS Safety Report 8986303 (Version 1)
Quarter: 2012Q4

REPORT INFORMATION
  Report Type: 
  Country: IT (occurrence: IT)
  Receive Date: 20121227
  Receipt Date: 20121227
  Transmission Date: 20130627
  Serious: Yes (Life-Threatening)
  Sender: FDA-Public Use
  Company Number: IT-BAYER-2012-132271

PATIENT
  Age: 71 Year
  Sex: Male

DRUGS (5)
  1. CIPROXIN RM [Suspect]
     Dosage: 1000 mg, QD
     Route: 048
     Dates: start: 20121119, end: 20121127
  2. VAXIGRIP [Suspect]
     Indication: FLU PREVENTION
     Dosage: 0.5 ml annualy
     Dates: start: 20121122, end: 20121122
  3. FERROUS SULFATE [Concomitant]
  4. NEO-FURADANTIN [Concomitant]
  5. PANTOPAN [Concomitant]

REACTIONS (3)
  - Autoimmune thrombocytopenia [Recovered/Resolved]
  - Gastric haemorrhage [Recovered/Resolved]
  - Anaemia [Recovered/Resolved]
